FAERS Safety Report 7900658-6 (Version None)
Quarter: 2011Q4

REPORT INFORMATION
  Report Type: 
  Country: None (occurrence: None)
  Receive Date: 20111108
  Receipt Date: 20111104
  Transmission Date: 20120403
  Serious: Yes (Hospitalization)
  Sender: FDA-Public Use
  Company Number: US-AMGEN-USASP2011041221

PATIENT
  Age: 67 Year
  Sex: Female
  Weight: 80 kg

DRUGS (15)
  1. PEGFILGRASTIM [Suspect]
     Indication: UTERINE LEIOMYOSARCOMA
     Dosage: 150 MUG/M2, UNK
     Route: 058
     Dates: start: 20110526
  2. BEVACIZUMAB [Suspect]
     Indication: UTERINE LEIOMYOSARCOMA
     Dosage: UNK
     Route: 042
     Dates: start: 20110526
  3. FUROSEMIDE [Concomitant]
  4. MS CONTIN [Concomitant]
  5. HYDROMORPHONE HCL [Concomitant]
  6. DOCETAXEL [Suspect]
     Indication: UTERINE LEIOMYOSARCOMA
     Dosage: 75 MG/M2, UNK
     Dates: start: 20110526
  7. FENTANYL [Concomitant]
  8. GEMCITABINE [Suspect]
     Indication: UTERINE LEIOMYOSARCOMA
     Dosage: 900 MG/M2, UNK
     Route: 042
     Dates: start: 20110526
  9. ZOSYN [Concomitant]
  10. DECADRON [Concomitant]
  11. COMPAZINE                          /00013304/ [Concomitant]
  12. ATIVAN [Concomitant]
  13. LACTULOSE [Concomitant]
  14. PHENERGAN                          /00033002/ [Concomitant]
  15. ZOFRAN                             /00955302/ [Concomitant]

REACTIONS (8)
  - BLOOD UREA INCREASED [None]
  - ABDOMINAL DISTENSION [None]
  - URINARY TRACT INFECTION [None]
  - VOMITING [None]
  - HYPERKALAEMIA [None]
  - NAUSEA [None]
  - BLOOD CREATININE INCREASED [None]
  - ABDOMINAL PAIN [None]
